FAERS Safety Report 17988525 (Version 1)
Quarter: 2020Q3

REPORT INFORMATION
  Report Type: Spontaneous
  Country: ES (occurrence: ES)
  Receive Date: 20200707
  Receipt Date: 20200707
  Transmission Date: 20201103
  Serious: Yes (Other)
  Sender: FDA-Public Use
  Company Number: ES-ASTRAZENECA-2020SE83805

PATIENT
  Sex: Female
  Weight: 90 kg

DRUGS (5)
  1. PREDNISONA [Concomitant]
     Active Substance: PREDNISONE
     Route: 048
     Dates: start: 20160518
  2. VANDRA [Concomitant]
     Route: 048
     Dates: start: 20160519
  3. FERRO [Concomitant]
     Route: 048
     Dates: start: 20160207
  4. ORFIDAL [Concomitant]
     Active Substance: LORAZEPAM
     Route: 048
     Dates: start: 20120502
  5. FASENRA [Suspect]
     Active Substance: BENRALIZUMAB
     Indication: ASTHMA
     Route: 058
     Dates: start: 20200127, end: 20200520

REACTIONS (2)
  - Muscle spasms [Unknown]
  - Myalgia [Unknown]

NARRATIVE: CASE EVENT DATE: 20200227
